FAERS Safety Report 19687055 (Version 1)
Quarter: 2021Q3

REPORT INFORMATION
  Report Type: Spontaneous
  Country: JP (occurrence: JP)
  Receive Date: 20210811
  Receipt Date: 20210811
  Transmission Date: 20211014
  Serious: Yes (Life-Threatening)
  Sender: FDA-Public Use
  Company Number: JP-CELGENEUS-JPN-20210800084

PATIENT
  Age: 55 Year
  Sex: Male
  Weight: 61 kg

DRUGS (10)
  1. CYRAMZA [Concomitant]
     Active Substance: RAMUCIRUMAB
     Indication: GASTRIC CANCER
     Dosage: 510 MILLIGRAM
     Route: 041
     Dates: start: 20210209, end: 20210706
  2. BELSOMRA [Concomitant]
     Active Substance: SUVOREXANT
     Indication: METASTATIC GASTRIC CANCER
     Dosage: 20 MILLIGRAM
     Route: 048
     Dates: start: 20210323
  3. ABRAXANE [Suspect]
     Active Substance: PACLITAXEL
     Indication: METASTATIC GASTRIC CANCER
     Dosage: 115?170 MG/DAY
     Route: 041
     Dates: start: 20210209, end: 20210713
  4. FENTANYL. [Concomitant]
     Active Substance: FENTANYL
     Indication: METASTATIC GASTRIC CANCER
     Dosage: 3 MILLIGRAM
     Route: 065
     Dates: start: 20210323
  5. SYMPROIC [Concomitant]
     Active Substance: NALDEMEDINE
     Indication: METASTATIC GASTRIC CANCER
     Dosage: .2 MILLIGRAM
     Route: 048
     Dates: start: 20210323
  6. MAALOX ANTACID [Concomitant]
     Active Substance: ALUMINUM HYDROXIDE\DIMETHICONE\MAGNESIUM HYDROXIDE
     Indication: METASTATIC GASTRIC CANCER
     Dosage: 3.6 GRAM
     Route: 048
     Dates: start: 20210323
  7. ADRENALINE [Concomitant]
     Active Substance: EPINEPHRINE
     Indication: BLOOD PRESSURE DECREASED
     Dosage: 1 MILLIGRAM
     Route: 030
     Dates: start: 20210713
  8. MOSAPRIDE [Concomitant]
     Active Substance: MOSAPRIDE
     Indication: METASTATIC GASTRIC CANCER
     Dosage: 15 MILLIGRAM
     Route: 048
     Dates: start: 20210323
  9. ACETAMINOPHEN. [Concomitant]
     Active Substance: ACETAMINOPHEN
     Indication: METASTATIC GASTRIC CANCER
     Dosage: 3200 MILLIGRAM
     Route: 065
     Dates: start: 20210323
  10. TAKECAB [Concomitant]
     Active Substance: VONOPRAZAN FUMARATE
     Indication: METASTATIC GASTRIC CANCER
     Dosage: 20 MILLIGRAM
     Route: 048
     Dates: start: 20210323

REACTIONS (1)
  - Anaphylactic shock [Recovered/Resolved]

NARRATIVE: CASE EVENT DATE: 20210713
